FAERS Safety Report 20825413 (Version 1)
Quarter: 2022Q2

REPORT INFORMATION
  Report Type: Spontaneous
  Country: CN (occurrence: CN)
  Receive Date: 20220513
  Receipt Date: 20220513
  Transmission Date: 20220721
  Serious: Yes (Other)
  Sender: FDA-Public Use
  Company Number: CN-CHIESI-2022CHF02244

PATIENT

DRUGS (2)
  1. CUROSURF [Suspect]
     Active Substance: PORACTANT ALFA
     Indication: Neonatal respiratory distress syndrome
     Dosage: UNK UNK, (1X)
     Route: 038
  2. CUROSURF [Suspect]
     Active Substance: PORACTANT ALFA
     Dosage: 100 MILLIGRAM/KILOGRAM, Q12H
     Route: 038

REACTIONS (1)
  - Neonatal pneumothorax [Unknown]
